FAERS Safety Report 9299178 (Version 4)
Quarter: 2013Q3

REPORT INFORMATION
  Report Type: Spontaneous
  Country: US (occurrence: US)
  Receive Date: 20130520
  Receipt Date: 20130802
  Transmission Date: 20140515
  Serious: Yes (Disabling, Other)
  Sender: FDA-Public Use
  Company Number: US-ABBOTT-13P-163-1090596-00

PATIENT
  Age: 57 Year
  Sex: Female

DRUGS (2)
  1. HUMIRA [Suspect]
     Indication: PSORIASIS
     Dosage: ONE DOSE ONLY
     Dates: start: 201303, end: 201303
  2. HUMIRA [Suspect]
     Route: 058
     Dates: start: 20130403, end: 20130502

REACTIONS (3)
  - Cerebral disorder [Recovering/Resolving]
  - Muscular weakness [Recovered/Resolved]
  - Coordination abnormal [Recovered/Resolved]
